FAERS Safety Report 8610027-1 (Version None)
Quarter: 2012Q3

REPORT INFORMATION
  Report Type: 
  Country: None (occurrence: None)
  Receive Date: 20120822
  Receipt Date: 20120813
  Transmission Date: 20120928
  Serious: Yes (Hospitalization)
  Sender: FDA-Public Use
  Company Number: AR-AMGEN-ARGSP2012017409

PATIENT
  Age: 39 Year
  Sex: Male

DRUGS (5)
  1. CLONAZEPAM [Concomitant]
     Dosage: UNK
  2. METHOTREXATE [Concomitant]
     Dosage: UNK
  3. AZULFIDINE [Concomitant]
     Dosage: UNK
  4. ENBREL [Suspect]
     Indication: ANKYLOSING SPONDYLITIS
     Dosage: 50 MG, WEEKLY
     Route: 058
     Dates: start: 20120202
  5. OMEPRAZOLE [Concomitant]
     Dosage: UNK

REACTIONS (10)
  - TINEA PEDIS [None]
  - PAIN IN EXTREMITY [None]
  - GAIT DISTURBANCE [None]
  - JOINT SWELLING [None]
  - DEFORMITY [None]
  - NECK PAIN [None]
  - PAIN [None]
  - ARTHRALGIA [None]
  - INSOMNIA [None]
  - SWELLING [None]
